FAERS Safety Report 24630876 (Version 1)
Quarter: 2024Q4

REPORT INFORMATION
  Report Type: Spontaneous
  Country: US (occurrence: US)
  Receive Date: 20241118
  Receipt Date: 20241118
  Transmission Date: 20250115
  Serious: No
  Sender: PAREXEL
  Company Number: US-SECURA BIO, INC.-2024-SECUR-US000031

PATIENT

DRUGS (2)
  1. COPIKTRA [Suspect]
     Active Substance: DUVELISIB
     Indication: Peripheral T-cell lymphoma unspecified
     Dosage: 25 MG, BID
     Route: 048
     Dates: start: 202402, end: 202402
  2. COPIKTRA [Suspect]
     Active Substance: DUVELISIB
     Dosage: 50 MG, BID
     Route: 048
     Dates: start: 202402

REACTIONS (7)
  - Arthralgia [Unknown]
  - Joint swelling [Unknown]
  - Pain in extremity [Unknown]
  - Pain [Unknown]
  - Musculoskeletal pain [Unknown]
  - Urticaria [Unknown]
  - Rash [Unknown]

NARRATIVE: CASE EVENT DATE: 20240101
